FAERS Safety Report 7293378-5 (Version None)
Quarter: 2011Q1

REPORT INFORMATION
  Report Type: 
  Country: None (occurrence: None)
  Receive Date: 20110215
  Receipt Date: 20101027
  Transmission Date: 20110831
  Serious: Yes (Death, Other)
  Sender: FDA-Public Use
  Company Number: DE-GENZYME-CAMP-1001408

PATIENT
  Age: 77 Year
  Sex: Female

DRUGS (7)
  1. PREDNISONE [Suspect]
     Indication: PERIPHERAL T-CELL LYMPHOMA UNSPECIFIED
     Dosage: 6 COURSES, EACH AT 14 DAY INTERVALS
     Route: 065
  2. NEUPOGEN [Suspect]
     Indication: PERIPHERAL T-CELL LYMPHOMA UNSPECIFIED
     Dosage: 6 COURSES, EACH AT 14 DAY INTERVALS
     Route: 065
  3. CAMPATH [Suspect]
     Indication: PERIPHERAL T-CELL LYMPHOMA UNSPECIFIED
     Dosage: 30 MG, UNK
     Route: 065
  4. RITUXIMAB [Concomitant]
     Indication: PRODUCT USED FOR UNKNOWN INDICATION
     Dosage: UNK
  5. CYCLOPHOSPHAMIDE [Suspect]
     Indication: PERIPHERAL T-CELL LYMPHOMA UNSPECIFIED
     Dosage: 6 COURSES, EACH AT 14 DAY INTERVALS
     Route: 065
  6. DOXORUBICIN [Suspect]
     Indication: PERIPHERAL T-CELL LYMPHOMA UNSPECIFIED
     Dosage: 6 COURSES, EACH AT 14 DAY INTERVALS
     Route: 065
  7. VINCRISTINE [Suspect]
     Indication: PERIPHERAL T-CELL LYMPHOMA UNSPECIFIED
     Dosage: 6 COURSES, EACH AT 14 DAY INTERVALS
     Route: 065

REACTIONS (2)
  - PULMONARY EMBOLISM [None]
  - DIFFUSE LARGE B-CELL LYMPHOMA [None]
